FAERS Safety Report 9382776 (Version 2)
Quarter: 2013Q3

REPORT INFORMATION
  Report Type: Spontaneous
  Country: BR (occurrence: BR)
  Receive Date: 20130703
  Receipt Date: 20130730
  Transmission Date: 20140515
  Serious: Yes (Death, Other)
  Sender: FDA-Public Use
  Company Number: BR-PFIZER INC-2013194120

PATIENT
  Age: 43 Year
  Sex: Male

DRUGS (1)
  1. TORISEL [Suspect]
     Indication: RENAL CANCER
     Dosage: 25 MG, SINGLE DOSE
     Dates: start: 201306, end: 201306

REACTIONS (5)
  - Disease progression [Fatal]
  - Renal cancer [Fatal]
  - Epistaxis [Unknown]
  - Blood urine present [Unknown]
  - Mouth haemorrhage [Unknown]
